FAERS Safety Report 8617609-1 (Version None)
Quarter: 2012Q3

REPORT INFORMATION
  Report Type: 
  Country: None (occurrence: None)
  Receive Date: 20120824
  Receipt Date: 20120125
  Transmission Date: 20120928
  Serious: No
  Sender: FDA-Public Use
  Company Number: US-ASTRAZENECA-2011SE72921

PATIENT
  Age: 85 Year
  Sex: Male
  Weight: 81.6 kg

DRUGS (2)
  1. SYMBICORT [Suspect]
     Indication: ASTHMA
     Dosage: 80/4.5  MCG BID
     Route: 055
     Dates: start: 20070101
  2. DULERA [Concomitant]

REACTIONS (3)
  - DRUG DOSE OMISSION [None]
  - PHARYNGEAL DISORDER [None]
  - DYSPHONIA [None]
